FAERS Safety Report 9876217 (Version 2)
Quarter: 2014Q1

REPORT INFORMATION
  Report Type: Other
  Country: US (occurrence: US)
  Receive Date: 20140206
  Receipt Date: 20140206
  Transmission Date: 20141002
  Serious: No
  Sender: FDA-Public Use
  Company Number: US-ACORDA-ACO_35677_2013

PATIENT
  Sex: Female
  Weight: 77.98 kg

DRUGS (6)
  1. AMPYRA [Suspect]
     Indication: GAIT DISTURBANCE
     Dosage: 10 MG, BID
     Route: 048
     Dates: start: 2012, end: 201212
  2. AMPYRA [Suspect]
     Dosage: 10 MG, BID
     Route: 048
     Dates: start: 201301
  3. DICLOFENAC [Concomitant]
     Indication: PRODUCT USED FOR UNKNOWN INDICATION
     Dosage: 100 MG, UNK
  4. BACLOFEN [Concomitant]
     Indication: PRODUCT USED FOR UNKNOWN INDICATION
     Dosage: 10 MG, UNK
  5. PROVIGIL [Concomitant]
     Indication: PRODUCT USED FOR UNKNOWN INDICATION
     Dosage: 200 MG, UNK
  6. REBIF [Concomitant]
     Indication: PRODUCT USED FOR UNKNOWN INDICATION
     Dosage: 44/0.5

REACTIONS (1)
  - Adverse drug reaction [Recovered/Resolved]
